FAERS Safety Report 4727552-6 (Version None)
Quarter: 2005Q3

REPORT INFORMATION
  Report Type: 
  Country: None (occurrence: None)
  Receive Date: 20050727
  Receipt Date: 20050727
  Transmission Date: 20060218
  Serious: Yes (Other)
  Sender: FDA-Public Use
  Company Number: None

PATIENT
  Age: 51 Year
  Sex: Female
  Weight: 58.9676 kg

DRUGS (1)
  1. PREMARIN [Suspect]
     Dosage: ONE A DAY

REACTIONS (12)
  - ABDOMINAL PAIN UPPER [None]
  - ABNORMAL DREAMS [None]
  - AMNESIA [None]
  - BLOOD PRESSURE ABNORMAL [None]
  - DEPRESSION [None]
  - DIZZINESS [None]
  - HEADACHE [None]
  - IRRITABILITY [None]
  - MALAISE [None]
  - PAIN [None]
  - PHOTOSENSITIVITY REACTION [None]
  - RESTLESS LEGS SYNDROME [None]
